FAERS Safety Report 20222356 (Version 2)
Quarter: 2022Q1

REPORT INFORMATION
  Report Type: Spontaneous
  Country: DE (occurrence: DE)
  Receive Date: 20211223
  Receipt Date: 20220107
  Transmission Date: 20220423
  Serious: Yes (Hospitalization)
  Sender: FDA-Public Use
  Company Number: None

PATIENT
  Age: 80 Year
  Sex: Female

DRUGS (7)
  1. ARIPIPRAZOLE [Suspect]
     Active Substance: ARIPIPRAZOLE
     Indication: Product used for unknown indication
     Dosage: 20 MG, 1-0-0-0,
  2. OLANZAPINE [Suspect]
     Active Substance: OLANZAPINE
     Indication: Product used for unknown indication
     Dosage: 20 MG, 0-0-1-0, TABLETTEN
  3. OLANZAPINE [Suspect]
     Active Substance: OLANZAPINE
     Indication: Product used for unknown indication
     Dosage: 5 MG, 1-0-0-0, TABLETTEN
  4. PIPAMPERONE HYDROCHLORIDE [Suspect]
     Active Substance: PIPAMPERONE HYDROCHLORIDE
     Indication: Product used for unknown indication
     Dosage: 40 MG, 0.5-0-0-1,
  5. Amlodipin-1A Pharma 5mg N [Concomitant]
     Indication: Product used for unknown indication
     Dosage: 5 MG, 0.5-0-0.5-0, TABLETTEN
  6. L-Thyroxin Henning 100Mikrogramm/ml [Concomitant]
     Indication: Product used for unknown indication
     Dosage: 100 G, 1-0-0-0,
  7. Torasemid-ratiopharm 5mg [Concomitant]
     Indication: Product used for unknown indication
     Dosage: 5 MG, 0.5-0-0-0, TABLETTEN

REACTIONS (4)
  - Angina pectoris [Unknown]
  - Medication error [Unknown]
  - Depressed level of consciousness [Unknown]
  - Syncope [Unknown]
